FAERS Safety Report 23854032 (Version 1)
Quarter: 2024Q2

REPORT INFORMATION
  Report Type: Spontaneous
  Country: IT (occurrence: IT)
  Receive Date: 20240514
  Receipt Date: 20240514
  Transmission Date: 20240716
  Serious: Yes (Hospitalization)
  Sender: FDA-Public Use
  Company Number: None

PATIENT
  Age: 48 Year
  Sex: Female

DRUGS (2)
  1. RUXIENCE [Suspect]
     Active Substance: RITUXIMAB-PVVR
     Indication: Secondary progressive multiple sclerosis
     Dosage: 1000 MG EVERY 6 MONTHS
     Route: 042
     Dates: start: 202110
  2. RUXIENCE [Suspect]
     Active Substance: RITUXIMAB-PVVR
     Dosage: 1000 MG EVERY 6 MONTHS (LAST ADMINISTRATION OF RUXIENCE WAS ON 07SEP2023)
     Route: 042
     Dates: start: 20230907

REACTIONS (2)
  - Uterine leiomyoma [Recovering/Resolving]
  - Off label use [Unknown]

NARRATIVE: CASE EVENT DATE: 20231215
